FAERS Safety Report 8299104-5 (Version None)
Quarter: 2012Q2

REPORT INFORMATION
  Report Type: 
  Country: None (occurrence: None)
  Receive Date: 20120416
  Receipt Date: 20120416
  Transmission Date: 20120825
  Serious: No
  Sender: FDA-Public Use
  Company Number: None

PATIENT
  Age: 28 Year
  Sex: Female

DRUGS (6)
  1. ETHAMBUTOL HYDROCHLORIDE [Concomitant]
  2. PREDNISONE TAB [Concomitant]
  3. MINOCYCLINE HCL [Concomitant]
  4. PYRAZINAMIDE [Suspect]
     Dates: start: 20050201, end: 20050208
  5. RIFAMPIN [Suspect]
     Dates: start: 20050201, end: 20050208
  6. ISONIAZID [Suspect]
     Dates: start: 20050201, end: 20050208

REACTIONS (29)
  - REFUSAL OF TREATMENT BY PATIENT [None]
  - RASH MACULAR [None]
  - PURPURA [None]
  - HEPATOMEGALY [None]
  - RENAL FAILURE ACUTE [None]
  - HYPOAESTHESIA ORAL [None]
  - HEPATIC NECROSIS [None]
  - LIVER INJURY [None]
  - URTICARIA [None]
  - DYSPNOEA [None]
  - SERUM FERRITIN INCREASED [None]
  - SWOLLEN TONGUE [None]
  - RASH MACULO-PAPULAR [None]
  - URINARY TRACT INFECTION [None]
  - RASH PRURITIC [None]
  - CHROMATURIA [None]
  - VOMITING [None]
  - DIARRHOEA [None]
  - ACUTE GENERALISED EXANTHEMATOUS PUSTULOSIS [None]
  - MUSCULAR WEAKNESS [None]
  - PYREXIA [None]
  - NAUSEA [None]
  - DERMATITIS EXFOLIATIVE [None]
  - BLOOD CREATINE PHOSPHOKINASE INCREASED [None]
  - DRUG ERUPTION [None]
  - PHARYNGITIS [None]
  - DECREASED APPETITE [None]
  - CYTOMEGALOVIRUS TEST POSITIVE [None]
  - MYOGLOBIN BLOOD INCREASED [None]
